FAERS Safety Report 15955674 (Version 1)
Quarter: 2019Q1

REPORT INFORMATION
  Report Type: Report from Study
  Country: ZA (occurrence: ZA)
  Receive Date: 20190213
  Receipt Date: 20190213
  Transmission Date: 20190417
  Serious: Yes (Other)
  Sender: FDA-Public Use
  Company Number: ZA-SA-2018SA270318

PATIENT
  Age: 68 Year
  Sex: Male

DRUGS (6)
  1. BRILINTA [Concomitant]
     Active Substance: TICAGRELOR
     Dosage: 90 MG, BID (AFTER BREAKFAST AND AFTER SUPPER)
     Dates: start: 20181009
  2. LASIX [Concomitant]
     Active Substance: FUROSEMIDE
     Dosage: 40 MG, BID
     Dates: start: 20140611
  3. OPTISULIN (INSULIN GLARGINE) [Suspect]
     Active Substance: INSULIN GLARGINE
     Indication: TYPE 2 DIABETES MELLITUS
     Dosage: 8 U, QD, AT BREAKFAST
     Dates: start: 20180625
  4. BILOCOR [Concomitant]
     Active Substance: BISOPROLOL FUMARATE
     Dosage: 2.5 MG, QD
     Dates: start: 20181009
  5. DISPRIN CV [Concomitant]
     Dosage: 100 MG, QD
     Dates: start: 20181009
  6. VILDAGLIPTIN [Concomitant]
     Active Substance: VILDAGLIPTIN
     Dosage: 50 MG, BID (AFTER SUPPER AND AFTER BREAKFAST)
     Dates: start: 20181009

REACTIONS (5)
  - Pain in extremity [Not Recovered/Not Resolved]
  - Hypoglycaemia [Recovered/Resolved]
  - Asthenia [Not Recovered/Not Resolved]
  - Weight decreased [Not Recovered/Not Resolved]
  - Cardiac dysfunction [Not Recovered/Not Resolved]
